FAERS Safety Report 10705170 (Version 9)
Quarter: 2016Q1

REPORT INFORMATION
  Report Type: Spontaneous
  Country: US (occurrence: US)
  Receive Date: 20150112
  Receipt Date: 20160224
  Transmission Date: 20160525
  Serious: Yes (Hospitalization, Other)
  Sender: FDA-Public Use
  Company Number: US-PFIZER INC-2015010578

PATIENT
  Age: 58 Year
  Sex: Female
  Weight: 68 kg

DRUGS (25)
  1. PROTONIX [Concomitant]
     Active Substance: PANTOPRAZOLE SODIUM
     Dosage: UNK
  2. CYCLOBENZAPRINE [Concomitant]
     Active Substance: CYCLOBENZAPRINE
     Dosage: 5 MG, 3X/DAY
     Route: 048
     Dates: start: 20150603
  3. PANTOPRAZOLE SODIUM. [Concomitant]
     Active Substance: PANTOPRAZOLE SODIUM
     Dosage: 40 MG, 1X/DAY
     Route: 048
     Dates: start: 20150310
  4. COUMADIN [Concomitant]
     Active Substance: WARFARIN SODIUM
     Indication: THROMBOSIS PROPHYLAXIS
     Dosage: 5MG (UNKNOWN FREQUENCY) 5 DAYS A WEEK
     Dates: start: 2001
  5. VITAMIN D [Concomitant]
     Active Substance: CHOLECALCIFEROL
     Dosage: 5000 IU, UNK
     Dates: start: 2012
  6. ZOCOR [Concomitant]
     Active Substance: SIMVASTATIN
     Dosage: UNK
  7. NITROSTAT [Concomitant]
     Active Substance: NITROGLYCERIN
     Dosage: 0.4 MG, UNK
     Route: 060
  8. PROAIR HFA [Concomitant]
     Active Substance: ALBUTEROL SULFATE
     Dosage: 2 DF, AS NEEDED
     Route: 045
  9. LYRICA [Suspect]
     Active Substance: PREGABALIN
     Indication: NEUROPATHY PERIPHERAL
     Dosage: UNK
  10. MORPHINE [Concomitant]
     Active Substance: MORPHINE
     Dosage: 15 MG, AS NEEDED (EVERY 4 HRS)
     Route: 048
  11. COUMADIN [Concomitant]
     Active Substance: WARFARIN SODIUM
     Dosage: 6MG (UNKNOWN FREQUENCY) 2 DAYS A WEEK
     Dates: start: 2001
  12. LANTUS [Concomitant]
     Active Substance: INSULIN GLARGINE
     Dosage: UNK, 2X/DAY (TAKE 25 UNITS IN AM AND 15 UNITS IN PM)
     Route: 058
  13. DIAZEPAM. [Concomitant]
     Active Substance: DIAZEPAM
     Dosage: 1 DF, AS NEEDED (TWICE A DAY)
     Route: 048
  14. FUROSEMIDE. [Concomitant]
     Active Substance: FUROSEMIDE
     Indication: SWELLING
     Dosage: 40 MG, 2X/DAY
     Route: 048
     Dates: start: 2001
  15. FLEXERIL [Concomitant]
     Active Substance: CYCLOBENZAPRINE HYDROCHLORIDE
     Dosage: UNK
  16. WARFARIN [Concomitant]
     Active Substance: WARFARIN
     Dosage: UNK, 1X/DAY (1 AND 1/2 TABLET ON MON., WED., AND FRI. AND 1 TABLET TUE., THUR., SAT. AND SUN.)
     Route: 048
  17. MORPHINE [Concomitant]
     Active Substance: MORPHINE
     Indication: BREAKTHROUGH PAIN
     Dosage: 15 MG, AS NEEDED UP TO 5 TIMES A DAY
     Route: 048
     Dates: start: 201410
  18. FISH OIL [Concomitant]
     Active Substance: FISH OIL
     Indication: BLOOD TRIGLYCERIDES ABNORMAL
     Dosage: 1200 IU, UNK
     Dates: start: 2012
  19. KAON-CL [Concomitant]
     Indication: ELECTROLYTE SUBSTITUTION THERAPY
     Dosage: 8 MEQ, 2X/DAY
     Dates: start: 2002
  20. SIMVASTATIN. [Concomitant]
     Active Substance: SIMVASTATIN
     Indication: BLOOD CHOLESTEROL INCREASED
     Dosage: 20 MG, DAILY
     Route: 048
     Dates: start: 2002
  21. INFLUENZA [Concomitant]
     Active Substance: INFLUENZA VIRUS VACCINE
     Dosage: 0.5 ML, UNK
     Route: 023
     Dates: start: 20151015
  22. LYRICA [Suspect]
     Active Substance: PREGABALIN
     Indication: COMPLEX REGIONAL PAIN SYNDROME
     Dosage: 150 MG, 3X/DAY
     Route: 048
     Dates: start: 2007
  23. POTASSIUM CHLORIDE. [Concomitant]
     Active Substance: POTASSIUM CHLORIDE
     Dosage: 1 DF, 3X/DAY
     Route: 048
  24. POTASSIUM CHLORIDE. [Concomitant]
     Active Substance: POTASSIUM CHLORIDE
     Dosage: 8 MEQ, 3X/DAY
     Route: 048
  25. ZAROXOLYN [Concomitant]
     Active Substance: METOLAZONE
     Dosage: 1 DF, 1X/DAY (BEFORE AM LASIX )
     Route: 048
     Dates: start: 20150409

REACTIONS (7)
  - Pain [Recovered/Resolved]
  - Cellulitis [Recovered/Resolved]
  - Skin exfoliation [Recovered/Resolved]
  - Erythema [Recovered/Resolved]
  - Swelling [Recovered/Resolved]
  - Disease progression [Recovered/Resolved]
  - Diabetes mellitus [Not Recovered/Not Resolved]

NARRATIVE: CASE EVENT DATE: 20140917
